FAERS Safety Report 24529391 (Version 1)
Quarter: 2024Q4

REPORT INFORMATION
  Report Type: Spontaneous
  Country: ZA (occurrence: ZA)
  Receive Date: 20241021
  Receipt Date: 20241021
  Transmission Date: 20250115
  Serious: Yes (Other)
  Sender: BAYER HEALTHCARE PHARMACEUTICALS INC.
  Company Number: ZA-BAYER-2024A149622

PATIENT
  Age: 27 Year
  Sex: Female

DRUGS (4)
  1. DIENOGEST\ESTRADIOL VALERATE [Suspect]
     Active Substance: DIENOGEST\ESTRADIOL VALERATE
     Route: 048
  2. CETIRIZINE [Concomitant]
     Active Substance: CETIRIZINE HYDROCHLORIDE
     Indication: Hypersensitivity
     Dosage: 10 MG, QD
     Route: 048
  3. SINU FLU [Concomitant]
     Dosage: 2 DF, TID
     Route: 048
  4. LEVONORGESTREL [Concomitant]
     Active Substance: LEVONORGESTREL
     Dosage: 1 DF, QD
     Route: 048

REACTIONS (2)
  - Pneumonia [None]
  - Malaise [None]
